FAERS Safety Report 6523653-0 (Version None)
Quarter: 2009Q4

REPORT INFORMATION
  Report Type: 
  Country: None (occurrence: None)
  Receive Date: 20091231
  Receipt Date: 20091228
  Transmission Date: 20100525
  Serious: Yes (Hospitalization)
  Sender: FDA-Public Use
  Company Number: PHHY2009FR27026

PATIENT
  Age: 48 Year
  Sex: Female

DRUGS (6)
  1. FEMARA [Suspect]
     Dosage: 2.5 MG
     Route: 048
     Dates: start: 20010615
  2. FEMARA [Suspect]
     Dosage: UNK
     Route: 048
  3. ESCITALOPRAM [Suspect]
     Dosage: UNK
     Route: 048
     Dates: start: 20070401
  4. TERCIAN [Suspect]
     Dosage: UNK
     Route: 048
     Dates: start: 20070901
  5. PRAZEPAM [Suspect]
     Dosage: UNK
     Route: 048
     Dates: start: 20030101
  6. SECTRAL [Suspect]
     Dosage: UNK
     Route: 048
     Dates: start: 20010101

REACTIONS (10)
  - BALANCE DISORDER [None]
  - CEREBELLAR SYNDROME [None]
  - EYE PAIN [None]
  - INTRACRANIAL PRESSURE INCREASED [None]
  - MENINGEAL DISORDER [None]
  - SCOTOMA [None]
  - SPINAL CORD INJURY [None]
  - VERTIGO [None]
  - VISION BLURRED [None]
  - VISUAL ACUITY REDUCED [None]
